FAERS Safety Report 17273124 (Version 2)
Quarter: 2020Q2

REPORT INFORMATION
  Report Type: Report from Study
  Country: CA (occurrence: CA)
  Receive Date: 20200115
  Receipt Date: 20200421
  Transmission Date: 20200713
  Serious: Yes (Death, Hospitalization)
  Sender: FDA-Public Use
  Company Number: CA-JNJFOC-20200111476

PATIENT
  Age: 62 Year
  Sex: Male
  Weight: 67 kg

DRUGS (1)
  1. REMICADE [Suspect]
     Active Substance: INFLIXIMAB
     Indication: RHEUMATOID ARTHRITIS
     Route: 042
     Dates: start: 20080530, end: 20190114

REACTIONS (2)
  - Death [Fatal]
  - Lung neoplasm malignant [Unknown]

NARRATIVE: CASE EVENT DATE: 20191204
